FAERS Safety Report 7972190-5 (Version None)
Quarter: 2011Q4

REPORT INFORMATION
  Report Type: 
  Country: None (occurrence: None)
  Receive Date: 20111212
  Receipt Date: 20111130
  Transmission Date: 20120403
  Serious: Yes (Hospitalization, Other)
  Sender: FDA-Public Use
  Company Number: DE-ELI_LILLY_AND_COMPANY-DE201107000483

PATIENT
  Age: 76 Year
  Sex: Female

DRUGS (2)
  1. FORTEO [Suspect]
     Indication: OSTEOPOROSIS
     Dosage: UNK, QD
     Route: 058
     Dates: start: 20110530
  2. VALORON [Concomitant]

REACTIONS (5)
  - FALL [None]
  - SPINAL FRACTURE [None]
  - ARTHRALGIA [None]
  - JOINT SWELLING [None]
  - JOINT STIFFNESS [None]
